FAERS Safety Report 8239409-7 (Version None)
Quarter: 2012Q1

REPORT INFORMATION
  Report Type: 
  Country: None (occurrence: None)
  Receive Date: 20120326
  Receipt Date: 20120314
  Transmission Date: 20120608
  Serious: Yes (Other)
  Sender: FDA-Public Use
  Company Number: 2012AP000324

PATIENT
  Age: 80 Year
  Sex: Male

DRUGS (8)
  1. LATANOPROST [Concomitant]
  2. TAMSULOSIN HCL [Concomitant]
  3. WARFARIN SODIUM [Concomitant]
  4. LAMOTRIGINE [Suspect]
     Indication: EPILEPSY
     Dosage: 25 MG; ;QD;
  5. DOUBLEBASE (HYDROMOL) [Concomitant]
  6. LEVOTHYROXINE SODIUM [Concomitant]
  7. RAMIPRIL [Suspect]
     Indication: HYPERTENSION
     Dosage: 1.25 MG;;PO;QD;PO
     Route: 048
     Dates: start: 20100124
  8. FINASTERIDE [Concomitant]

REACTIONS (3)
  - MYELODYSPLASTIC SYNDROME [None]
  - WHITE BLOOD CELL COUNT DECREASED [None]
  - ANAEMIA [None]
